FAERS Safety Report 23956856 (Version 1)
Quarter: 2024Q2

REPORT INFORMATION
  Report Type: Spontaneous
  Country: US (occurrence: US)
  Receive Date: 20240610
  Receipt Date: 20240610
  Transmission Date: 20240716
  Serious: No
  Sender: FDA-Public Use
  Company Number: US-P+L Developments of Newyork Corporation-2157952

PATIENT

DRUGS (1)
  1. DOCOSANOL [Suspect]
     Active Substance: DOCOSANOL
     Indication: Oral herpes
     Route: 065

REACTIONS (1)
  - Drug ineffective [Unknown]
